FAERS Safety Report 9687023 (Version 1)
Quarter: 2013Q4

REPORT INFORMATION
  Report Type: Spontaneous
  Country: US (occurrence: US)
  Receive Date: 20131113
  Receipt Date: 20131113
  Transmission Date: 20140711
  Serious: Yes (Other)
  Sender: FDA-Public Use
  Company Number: PHEH2013US023641

PATIENT
  Sex: Female

DRUGS (11)
  1. MYFORTIC [Suspect]
     Indication: MYELITIS TRANSVERSE
     Dosage: 1444 MG, QD
     Route: 048
  2. MYFORTIC [Suspect]
     Indication: SJOGREN^S SYNDROME
  3. MYFORTIC [Suspect]
     Indication: OFF LABEL USE
  4. PREDNISONE [Concomitant]
  5. PLAQUENIL [Concomitant]
  6. FOSAMAX [Concomitant]
  7. OXYBUTIN [Concomitant]
  8. PROBIOTIC                          /07343501/ [Concomitant]
  9. CALCIUM [Concomitant]
  10. VITAMIN B3 [Concomitant]
  11. VITAMIN B12 [Concomitant]

REACTIONS (2)
  - Spinal cord oedema [Unknown]
  - Paralysis [Unknown]
